FAERS Safety Report 7092743-9 (Version None)
Quarter: 2010Q4

REPORT INFORMATION
  Report Type: 
  Country: None (occurrence: None)
  Receive Date: 20101110
  Receipt Date: 20080708
  Transmission Date: 20110411
  Serious: No
  Sender: FDA-Public Use
  Company Number: US-KINGPHARMUSA00001-K200800801

PATIENT
  Sex: Female
  Weight: 64.036 kg

DRUGS (8)
  1. LEVOXYL [Suspect]
     Indication: HYPOTHYROIDISM
     Dosage: 75 MCG, QOD
     Route: 048
  2. LEVOXYL [Suspect]
     Dosage: 50 MCG, QD
     Route: 048
     Dates: start: 19990101
  3. LEVOXYL [Suspect]
     Dosage: 75 MCG, BIW
     Route: 048
  4. LEVOXYL [Suspect]
     Dosage: 50 MCG, FIVEDAY
     Route: 048
  5. BLOOD PRESSURE PILLS [Concomitant]
     Indication: BLOOD PRESSURE
     Dosage: UNK, QD
  6. ASPIRIN [Concomitant]
     Indication: ARTERIAL OCCLUSIVE DISEASE
     Dosage: UNK, QD
  7. DIURETICS [Concomitant]
  8. DIURETICS [Concomitant]

REACTIONS (4)
  - BLOOD THYROID STIMULATING HORMONE ABNORMAL [None]
  - DYSPNOEA [None]
  - HYPERHIDROSIS [None]
  - WEIGHT INCREASED [None]
